FAERS Safety Report 8251804-9 (Version None)
Quarter: 2012Q2

REPORT INFORMATION
  Report Type: 
  Country: None (occurrence: None)
  Receive Date: 20120402
  Receipt Date: 20120329
  Transmission Date: 20120825
  Serious: No
  Sender: FDA-Public Use
  Company Number: US-BAYER-2012-031716

PATIENT
  Age: 65 Year
  Sex: Male

DRUGS (5)
  1. ULTRAVIST 150 [Suspect]
     Indication: COMPUTERISED TOMOGRAM
  2. TOPROL-XL [Concomitant]
  3. PLAVIX [Concomitant]
  4. ULTRAVIST 150 [Suspect]
     Indication: COLON CANCER
     Dosage: DAILY DOSE 120 ML
     Route: 042
     Dates: start: 20120328, end: 20120328
  5. CHEMOTHERAPEUTICS NOS [Concomitant]

REACTIONS (3)
  - PRURITUS [None]
  - URTICARIA [None]
  - SNEEZING [None]
